FAERS Safety Report 19073015 (Version 1)
Quarter: 2021Q1

REPORT INFORMATION
  Report Type: Spontaneous
  Country: NL (occurrence: PL)
  Receive Date: 20210330
  Receipt Date: 20210330
  Transmission Date: 20210420
  Serious: Yes (Other)
  Sender: FDA-Public Use
  Company Number: PL-FRESENIUS KABI-FK202103069

PATIENT
  Age: 68 Year
  Sex: Male

DRUGS (2)
  1. FLUOROURACIL. [Suspect]
     Active Substance: FLUOROURACIL
     Indication: GASTRIC CANCER
     Route: 065
  2. OXALIPLATIN (MANUFACTURER UNKNOWN) [Suspect]
     Active Substance: OXALIPLATIN
     Indication: GASTRIC CANCER
     Route: 065

REACTIONS (1)
  - Ischaemia [Unknown]

NARRATIVE: CASE EVENT DATE: 20180917
